FAERS Safety Report 8065254-1 (Version None)
Quarter: 2012Q1

REPORT INFORMATION
  Report Type: 
  Country: None (occurrence: None)
  Receive Date: 20120117
  Receipt Date: 20120109
  Transmission Date: 20120608
  Serious: Yes (Hospitalization)
  Sender: FDA-Public Use
  Company Number: ACO_28571_2011

PATIENT
  Age: 62 Year
  Sex: Male
  Weight: 67 kg

DRUGS (17)
  1. LOVENOX [Concomitant]
  2. CYCLOBENZAPRINE [Concomitant]
  3. AMANTADINE HCL [Concomitant]
  4. HUMULIN (INSULIN HUMAN INJECTION, ISOPHANE) [Concomitant]
  5. PLAVIX [Concomitant]
  6. CRESTOR [Concomitant]
  7. NITROGLYCERIN (GLUCERYL TRINITRATE) [Concomitant]
  8. BACLOFEN [Concomitant]
  9. AVONEX [Concomitant]
  10. DIFLUNISAL IDIFLUNISAL) [Concomitant]
  11. METFORMIN HCL [Concomitant]
  12. RAMIPRIL [Concomitant]
  13. AMPYRA [Suspect]
     Indication: MULTIPLE SCLEROSIS
     Dates: start: 20060622
  14. HYDROCHLOROTHIAZIDE [Concomitant]
  15. ASPIRIN [Concomitant]
  16. DILTIAZEM [Concomitant]
  17. DITROPAN [Concomitant]

REACTIONS (8)
  - CORONARY ARTERY RESTENOSIS [None]
  - CONDUCTION DISORDER [None]
  - DYSPNOEA [None]
  - BLOOD PRESSURE INCREASED [None]
  - CORONARY ARTERY DISEASE [None]
  - ANGINA PECTORIS [None]
  - GLYCOSYLATED HAEMOGLOBIN INCREASED [None]
  - ELECTROCARDIOGRAM ST SEGMENT ABNORMAL [None]
